FAERS Safety Report 7321769-2 (Version None)
Quarter: 2011Q1

REPORT INFORMATION
  Report Type: 
  Country: None (occurrence: None)
  Receive Date: 20110215
  Receipt Date: 20110203
  Transmission Date: 20110831
  Serious: Yes (Other)
  Sender: FDA-Public Use
  Company Number: CIO11002141

PATIENT
  Sex: Female

DRUGS (5)
  1. LEVOTHYROXINE SODIUM [Concomitant]
  2. ALLERGY MEDICATION [Concomitant]
  3. CREST PRO-HEALTH TOOTHPASTE, FORM/FLAVOR UNKNOWN(SODIUM POLYPHOSPHATE [Suspect]
     Indication: DENTAL DISORDER PROPHYLAXIS
     Dosage: 1 APPLIC, 1 ONLY, INTRAORAL
     Route: 048
     Dates: start: 20110202, end: 20110202
  4. LIPITOR [Concomitant]
  5. SPIRONOLACTONE [Concomitant]

REACTIONS (8)
  - STOMATITIS [None]
  - OEDEMA MOUTH [None]
  - DRUG HYPERSENSITIVITY [None]
  - PHARYNGEAL OEDEMA [None]
  - CHEMICAL BURN OF GASTROINTESTINAL TRACT [None]
  - THROAT IRRITATION [None]
  - DYSPHAGIA [None]
  - DYSPNOEA [None]
